FAERS Safety Report 4284113-3 (Version None)
Quarter: 2004Q1

REPORT INFORMATION
  Report Type: 
  Country: None (occurrence: None)
  Receive Date: 20040130
  Receipt Date: 20040115
  Transmission Date: 20041129
  Serious: Yes (Hospitalization, Other)
  Sender: FDA-Public Use
  Company Number: 2003IM000509

PATIENT
  Age: 52 Year
  Sex: Male

DRUGS (4)
  1. ADVAFERON (A643_INTERFERON ALFACON-1) [Suspect]
     Indication: HEPATITIS C
     Dosage: 12 MU; TIW; SUBCUTANEOUS
     Route: 058
     Dates: start: 20030213, end: 20030414
  2. DICLOFENAC SODIUM [Concomitant]
  3. CELESTAMINE TAB [Concomitant]
  4. INTERFERON ALFA-2B [Concomitant]

REACTIONS (3)
  - DEAFNESS NEUROSENSORY [None]
  - DEAFNESS UNILATERAL [None]
  - MALAISE [None]
